FAERS Safety Report 6610391-9 (Version None)
Quarter: 2010Q1

REPORT INFORMATION
  Report Type: 
  Country: None (occurrence: None)
  Receive Date: 20100302
  Receipt Date: 20100209
  Transmission Date: 20100710
  Serious: No
  Sender: FDA-Public Use
  Company Number: US-BAYER-201014406NA

PATIENT
  Age: 76 Year
  Sex: Male
  Weight: 100 kg

DRUGS (4)
  1. ULTRAVIST (PHARMACY BULK) [Suspect]
     Indication: COMPUTERISED TOMOGRAM ABDOMEN
     Dosage: TOTAL DAILY DOSE: 100 ML  UNIT DOSE: 500 ML
     Route: 042
     Dates: start: 20100209, end: 20100209
  2. SYNTHROID [Concomitant]
  3. ATENOLOL [Concomitant]
  4. LYRICA [Concomitant]

REACTIONS (2)
  - PRURITUS [None]
  - URTICARIA [None]
